FAERS Safety Report 14933271 (Version 1)
Quarter: 2018Q2

REPORT INFORMATION
  Report Type: Report from Study
  Country: DE (occurrence: DE)
  Receive Date: 20180524
  Receipt Date: 20180524
  Transmission Date: 20180711
  Serious: Yes (Other)
  Sender: FDA-Public Use
  Company Number: DE-ROCHE-2127791

PATIENT

DRUGS (1)
  1. ALTEPLASE. [Suspect]
     Active Substance: ALTEPLASE
     Indication: CEREBROVASCULAR ACCIDENT
     Dosage: WITH 10% AS BOLUS AND REMAINDER BY INFUSION DURING 60 MIN PERIOD
     Route: 042

REACTIONS (2)
  - Blood disorder [Unknown]
  - Lymphatic disorder [Unknown]
